FAERS Safety Report 12908211 (Version 2)
Quarter: 2016Q4

REPORT INFORMATION
  Report Type: Spontaneous
  Country: NO (occurrence: NO)
  Receive Date: 20161103
  Receipt Date: 20161109
  Transmission Date: 20170207
  Serious: Yes (Life-Threatening)
  Sender: FDA-Public Use
  Company Number: NO-TEVA-709480ISR

PATIENT

DRUGS (1)
  1. METHOTREXATE (METHOTREXATE SODIUM) [Suspect]
     Active Substance: METHOTREXATE SODIUM
     Indication: LEUKAEMIA
     Dosage: 240 MG, SINGLE
     Route: 037
     Dates: start: 20140918, end: 20140918

REACTIONS (6)
  - Seizure [Unknown]
  - Lethargy [Unknown]
  - Unresponsive to stimuli [Recovering/Resolving]
  - Confusional state [Unknown]
  - Accidental overdose [Recovering/Resolving]
  - Pyrexia [Recovering/Resolving]

NARRATIVE: CASE EVENT DATE: 20140918
